FAERS Safety Report 11765651 (Version 1)
Quarter: 2015Q4

REPORT INFORMATION
  Report Type: Spontaneous
  Country: US (occurrence: US)
  Receive Date: 20151120
  Receipt Date: 20151120
  Transmission Date: 20160304
  Serious: No
  Sender: FDA-Public Use
  Company Number: US-ELI_LILLY_AND_COMPANY-US201407003926

PATIENT
  Sex: Female

DRUGS (1)
  1. FORTEO [Suspect]
     Active Substance: TERIPARATIDE
     Indication: OSTEOPOROSIS
     Dosage: UNK, QD
     Route: 065
     Dates: start: 201406, end: 20140704

REACTIONS (5)
  - Oedema [Unknown]
  - Skin exfoliation [Unknown]
  - Peripheral swelling [Recovering/Resolving]
  - Injection site pain [Unknown]
  - Muscle spasms [Unknown]
